FAERS Safety Report 4496756-2 (Version None)
Quarter: 2004Q4

REPORT INFORMATION
  Report Type: 
  Country: None (occurrence: None)
  Receive Date: 20041109
  Receipt Date: 20040908
  Transmission Date: 20050328
  Serious: Yes (Life-Threatening)
  Sender: FDA-Public Use
  Company Number: US-ROCHE-380257

PATIENT
  Age: 39 Year
  Sex: Male
  Weight: 80.3 kg

DRUGS (1)
  1. FUZEON [Suspect]
     Indication: HIV INFECTION
     Route: 058
     Dates: start: 20040408

REACTIONS (2)
  - LOBAR PNEUMONIA [None]
  - PLEURITIC PAIN [None]
